FAERS Safety Report 9557582 (Version 1)
Quarter: 2013Q3

REPORT INFORMATION
  Report Type: Spontaneous
  Country: KR (occurrence: KR)
  Receive Date: 20130926
  Receipt Date: 20130926
  Transmission Date: 20140515
  Serious: Yes (Other)
  Sender: FDA-Public Use
  Company Number: KR-ACTAVIS-2013-16699

PATIENT
  Age: 57 Year
  Sex: Female

DRUGS (2)
  1. TRAMADOL (UNKNOWN) [Suspect]
     Indication: MUSCULOSKELETAL PAIN
     Dosage: 300 MG, DAILY
     Route: 065
  2. PARACETAMOL [Concomitant]
     Indication: MUSCULOSKELETAL PAIN
     Dosage: 1950 MG, DAILY

REACTIONS (3)
  - Hyperaesthesia [Recovered/Resolved]
  - Hyperhidrosis [Recovered/Resolved]
  - Irritability [Unknown]
